FAERS Safety Report 5760623-4 (Version None)
Quarter: 2008Q2

REPORT INFORMATION
  Report Type: 
  Country: None (occurrence: None)
  Receive Date: 20080602
  Receipt Date: 20080521
  Transmission Date: 20081010
  Serious: Yes (Other)
  Sender: FDA-Public Use
  Company Number: DSU-2008-00731

PATIENT
  Age: 58 Year
  Sex: Female
  Weight: 122.4712 kg

DRUGS (3)
  1. BENICAR HCT [Suspect]
     Indication: HYPERTENSION
     Dosage: 40/12.5 MG (QD), PER ORAL; ABOUT ONE AND A HALF YEARS AGO
     Route: 048
  2. LYRICA (PREGABALIN) (PREGABALIN) [Concomitant]
  3. GAS ANESTHESIA (ALL OTHER THERAPEUTIC PRODUCTS) [Concomitant]

REACTIONS (2)
  - BLOOD PRESSURE DECREASED [None]
  - ROTATOR CUFF SYNDROME [None]
